FAERS Safety Report 7639564-3 (Version None)
Quarter: 2011Q3

REPORT INFORMATION
  Report Type: 
  Country: None (occurrence: None)
  Receive Date: 20110722
  Receipt Date: 20110707
  Transmission Date: 20111222
  Serious: Yes (Hospitalization)
  Sender: FDA-Public Use
  Company Number: 973751

PATIENT
  Age: 50 Year
  Sex: Female

DRUGS (1)
  1. DOCETAXEL [Suspect]
     Indication: BREAST CANCER
     Dosage: 140 MG MILLIGRAM(S), INTRAVENOUS
     Route: 042
     Dates: start: 20110609, end: 20110609

REACTIONS (5)
  - NEUTROPENIA [None]
  - BOTULISM [None]
  - ABDOMINAL PAIN [None]
  - VOMITING [None]
  - BACTERIAL FOOD POISONING [None]
